FAERS Safety Report 20518279 (Version 1)
Quarter: 2022Q1

REPORT INFORMATION
  Report Type: Spontaneous
  Country: US (occurrence: None)
  Receive Date: 20220224
  Receipt Date: 20220224
  Transmission Date: 20220423
  Serious: Yes (Disabling)
  Sender: FDA-Public Use
  Company Number: None

PATIENT
  Age: 77 Year
  Sex: Male
  Weight: 70.65 kg

DRUGS (6)
  1. REPATHA [Suspect]
     Active Substance: EVOLOCUMAB
     Indication: Blood cholesterol increased
     Dosage: OTHER FREQUENCY : EVERY 2 WEEKS;?OTHER ROUTE : INJECTED IN STOMACH MUSCLE 2^ FROM NAVAL;?
     Route: 050
     Dates: start: 20210930, end: 20220217
  2. Edarbychlor 40/12.5 [Concomitant]
  3. VITAMIN C [Concomitant]
     Active Substance: ASCORBIC ACID
  4. zinc + vitamin D gummies [Concomitant]
  5. COENZYME Q10 [Concomitant]
     Active Substance: DIETARY SUPPLEMENT\UBIDECARENONE
  6. ProArgi9 + [Concomitant]

REACTIONS (4)
  - Asthenia [None]
  - Asthenia [None]
  - Fall [None]
  - Condition aggravated [None]

NARRATIVE: CASE EVENT DATE: 20220218
